FAERS Safety Report 7389418 (Version 4)
Quarter: 2012Q4

REPORT INFORMATION
  Report Type: 
  Country: US (occurrence: US)
  Receive Date: 20100517
  Receipt Date: 20121112
  Transmission Date: 20130627
  Serious: Yes (Other)
  Sender: FDA-Public Use
  Company Number: PHEH2010US03441

PATIENT
  Sex: Female

DRUGS (1)
  1. TEGRETOL [Suspect]
     Dosage: UNK
     Dates: start: 20081107

REACTIONS (69)
  - Toxic epidermal necrolysis [Unknown]
  - Stevens-Johnson syndrome [Unknown]
  - Injury [Unknown]
  - Deformity [Unknown]
  - Pain [Unknown]
  - Disability [Unknown]
  - Mental disorder [Unknown]
  - Anxiety [Unknown]
  - Anhedonia [Unknown]
  - Decreased interest [Unknown]
  - Rash [Unknown]
  - Pruritus [Unknown]
  - Skin discolouration [Unknown]
  - Skin exfoliation [Unknown]
  - Alopecia [Unknown]
  - Nail disorder [Unknown]
  - Pigmentation disorder [Unknown]
  - Urticaria [Unknown]
  - Swelling [Unknown]
  - Skin lesion [Unknown]
  - Skin burning sensation [Unknown]
  - Mucous membrane disorder [Unknown]
  - Scar [Unknown]
  - Blindness [Unknown]
  - Internal injury [Unknown]
  - Hypersensitivity [Unknown]
  - Vaginal haemorrhage [Unknown]
  - Abdominal pain lower [Unknown]
  - Constipation [Unknown]
  - Anaemia [Unknown]
  - Neoplasm malignant [Unknown]
  - Diabetes mellitus [Unknown]
  - Dysphonia [Unknown]
  - Cough [Unknown]
  - Arthralgia [Unknown]
  - Fatigue [Unknown]
  - Lip swelling [Unknown]
  - Foot fracture [Unknown]
  - Pain in extremity [Unknown]
  - Musculoskeletal pain [Unknown]
  - Oedema peripheral [Unknown]
  - Muscle swelling [Unknown]
  - Headache [Unknown]
  - Chest pain [Unknown]
  - Emphysema [Unknown]
  - Muscular weakness [Unknown]
  - Paraesthesia [Unknown]
  - Confusional state [Unknown]
  - Hypertension [Unknown]
  - Hyperlipidaemia [Unknown]
  - Depression [Unknown]
  - Syphilis [Unknown]
  - Decreased appetite [Unknown]
  - Sinus bradycardia [Unknown]
  - Cerebrovascular accident [Unknown]
  - Convulsion [Unknown]
  - Bradycardia [Unknown]
  - Suicide attempt [Unknown]
  - Erythema [Unknown]
  - Helicobacter infection [Unknown]
  - Osteoarthritis [Unknown]
  - Dysphagia [Unknown]
  - Gastritis [Unknown]
  - Sexual dysfunction [Unknown]
  - Lymphadenopathy [Unknown]
  - Hypertensive encephalopathy [Unknown]
  - Intracranial aneurysm [Unknown]
  - Skin hyperpigmentation [Unknown]
  - Drug hypersensitivity [Unknown]
